FAERS Safety Report 11358877 (Version 1)
Quarter: 2015Q3

REPORT INFORMATION
  Report Type: Spontaneous
  Country: US (occurrence: None)
  Receive Date: 20150709
  Receipt Date: 20150709
  Transmission Date: 20151125
  Serious: Yes (Hospitalization)
  Sender: FDA-Public Use
  Company Number: PHEH2014US026102

PATIENT
  Age: 87 Year
  Sex: Female

DRUGS (1)
  1. GLEEVEC [Suspect]
     Active Substance: IMATINIB MESYLATE
     Indication: SOFT TISSUE SARCOMA
     Dates: start: 20140719

REACTIONS (7)
  - Decreased appetite [None]
  - Dyspnoea [None]
  - Fluid retention [None]
  - Pleural effusion [None]
  - Pericardial effusion [None]
  - Nausea [None]
  - Dry skin [None]
